FAERS Safety Report 7339417-4 (Version None)
Quarter: 2011Q1

REPORT INFORMATION
  Report Type: 
  Country: None (occurrence: None)
  Receive Date: 20110308
  Receipt Date: 20101222
  Transmission Date: 20110831
  Serious: No
  Sender: FDA-Public Use
  Company Number: US-AMGEN-USASP2010010872

PATIENT
  Age: 45 Year
  Sex: Female

DRUGS (1)
  1. PROLIA [Suspect]
     Indication: OSTEOPOROSIS POSTMENOPAUSAL
     Dates: start: 20101209

REACTIONS (3)
  - MALAISE [None]
  - URINARY TRACT INFECTION [None]
  - PYREXIA [None]
